FAERS Safety Report 11776873 (Version 2)
Quarter: 2015Q4

REPORT INFORMATION
  Report Type: Report from Study
  Country: BR (occurrence: BR)
  Receive Date: 20151125
  Receipt Date: 20151209
  Transmission Date: 20160304
  Serious: Yes (Other)
  Sender: FDA-Public Use
  Company Number: BR-ROCHE-1379210

PATIENT
  Age: 51 Year
  Sex: Female
  Weight: 77 kg

DRUGS (6)
  1. MABTHERA [Suspect]
     Active Substance: RITUXIMAB
     Indication: RHEUMATOID ARTHRITIS
     Route: 065
     Dates: start: 20151026
  2. PONDERA [Concomitant]
     Active Substance: PAROXETINE HYDROCHLORIDE
     Route: 065
     Dates: start: 2015
  3. PURAN [Concomitant]
     Active Substance: LEVOTHYROXINE SODIUM
     Indication: THYROID DISORDER
  4. ACTEMRA [Suspect]
     Active Substance: TOCILIZUMAB
     Indication: RHEUMATOID ARTHRITIS
     Route: 042
     Dates: end: 20150930
  5. DIOVAN [Concomitant]
     Active Substance: VALSARTAN
     Indication: HYPERTENSION
     Route: 065
     Dates: start: 2010
  6. PRIMIDON [Concomitant]
     Active Substance: PRIMIDONE
     Indication: ESSENTIAL TREMOR
     Route: 065
     Dates: start: 2015

REACTIONS (17)
  - Cataract [Not Recovered/Not Resolved]
  - Dysphonia [Recovered/Resolved]
  - Pain in extremity [Not Recovered/Not Resolved]
  - Arthralgia [Not Recovered/Not Resolved]
  - Pain in extremity [Unknown]
  - Decreased appetite [Not Recovered/Not Resolved]
  - Drug ineffective [Unknown]
  - Pruritus generalised [Unknown]
  - Fatigue [Not Recovered/Not Resolved]
  - Cough [Recovered/Resolved]
  - Dyspnoea [Recovered/Resolved]
  - Dysstasia [Unknown]
  - Nasopharyngitis [Recovered/Resolved]
  - Malaise [Unknown]
  - Swelling [Unknown]
  - Pain [Unknown]
  - Musculoskeletal stiffness [Not Recovered/Not Resolved]

NARRATIVE: CASE EVENT DATE: 20151026
